FAERS Safety Report 7221197-4 (Version None)
Quarter: 2011Q1

REPORT INFORMATION
  Report Type: 
  Country: None (occurrence: None)
  Receive Date: 20110112
  Receipt Date: 20110103
  Transmission Date: 20110831
  Serious: Yes (Death, Hospitalization, Other)
  Sender: FDA-Public Use
  Company Number: BR-ELI_LILLY_AND_COMPANY-BR201011005076

PATIENT
  Sex: Female

DRUGS (1)
  1. FORTEO [Suspect]
     Dosage: UNK, UNKNOWN
     Route: 065
     Dates: start: 20070101

REACTIONS (7)
  - RENAL FAILURE [None]
  - JAUNDICE [None]
  - HYPOTENSION [None]
  - ABDOMINAL DISTENSION [None]
  - HEPATIC CIRRHOSIS [None]
  - BRAIN OEDEMA [None]
  - ENCEPHALOPATHY [None]
